FAERS Safety Report 4666859-8 (Version None)
Quarter: 2005Q2

REPORT INFORMATION
  Report Type: 
  Country: None (occurrence: None)
  Receive Date: 20050518
  Receipt Date: 20041115
  Transmission Date: 20051028
  Serious: Yes (Other)
  Sender: FDA-Public Use
  Company Number: 2004228306US

PATIENT
  Age: 26 Year
  Sex: Female

DRUGS (3)
  1. DEPO-PROVERA [Suspect]
     Indication: CONTRACEPTION
     Dosage: UNK ( FIRST INJ, TRIMESRAL ) UNK , UNK ( SECOND INJ, TRIMESTRAL )  UNK, UNK ( THIRD INJ TRIMES) UNK
     Route: 065
     Dates: start: 20031117, end: 20031117
  2. DEPO-PROVERA [Suspect]
     Indication: CONTRACEPTION
     Dosage: UNK ( FIRST INJ, TRIMESRAL ) UNK , UNK ( SECOND INJ, TRIMESTRAL )  UNK, UNK ( THIRD INJ TRIMES) UNK
     Route: 065
     Dates: start: 20040210, end: 20040210
  3. DEPO-PROVERA [Suspect]
     Indication: CONTRACEPTION
     Dosage: UNK ( FIRST INJ, TRIMESRAL ) UNK , UNK ( SECOND INJ, TRIMESTRAL )  UNK, UNK ( THIRD INJ TRIMES) UNK
     Route: 065
     Dates: start: 20040504, end: 20040504

REACTIONS (1)
  - UNINTENDED PREGNANCY [None]
